FAERS Safety Report 7985692-2 (Version None)
Quarter: 2011Q4

REPORT INFORMATION
  Report Type: 
  Country: None (occurrence: None)
  Receive Date: 20111216
  Receipt Date: 20111214
  Transmission Date: 20120403
  Serious: Yes (Hospitalization)
  Sender: FDA-Public Use
  Company Number: BR-ABBOTT-11P-020-0874719-00

PATIENT
  Sex: Male
  Weight: 100 kg

DRUGS (7)
  1. HUMIRA [Suspect]
     Indication: PSORIASIS
     Dosage: (80MG), ONCE
     Route: 058
     Dates: start: 20110907
  2. CIPROFIBRATE [Concomitant]
     Indication: BLOOD TRIGLYCERIDES ABNORMAL
     Route: 048
  3. HYDROCHLOROTHIAZIDE + LOSARTAN POTASSIUM [Concomitant]
     Indication: HYPERTENSION
     Dosage: 25 MG + 100 MG IN THE MORNING
     Route: 048
  4. HUMIRA [Suspect]
     Route: 058
     Dates: end: 20111109
  5. DAPSONE [Suspect]
     Indication: PRODUCT USED FOR UNKNOWN INDICATION
  6. METHOTREXATE [Suspect]
     Indication: PRODUCT USED FOR UNKNOWN INDICATION
  7. LOSARTAN POTASSIUM [Concomitant]
     Indication: HYPERTENSION
     Dosage: AT NIGHT
     Route: 048

REACTIONS (10)
  - JAUNDICE [None]
  - FISTULA DISCHARGE [None]
  - ERYTHEMA [None]
  - PALMAR ERYTHEMA [None]
  - SKIN INFECTION [None]
  - FISTULA [None]
  - PUSTULAR PSORIASIS [None]
  - DERMATITIS EXFOLIATIVE [None]
  - SWELLING [None]
  - SCLERAL DISCOLOURATION [None]
